FAERS Safety Report 14977798 (Version 2)
Quarter: 2018Q2

REPORT INFORMATION
  Report Type: Spontaneous
  Country: US (occurrence: US)
  Receive Date: 20180606
  Receipt Date: 20180619
  Transmission Date: 20180711
  Serious: Yes (Hospitalization, Other)
  Sender: FDA-Public Use
  Company Number: US-AMGEN-USASP2018073475

PATIENT
  Age: 68 Year
  Sex: Female

DRUGS (2)
  1. PROLIA [Suspect]
     Active Substance: DENOSUMAB
     Indication: OSTEOPENIA
     Dosage: 60 MG, Q6MO
     Route: 065
     Dates: start: 20140807
  2. PROLIA [Suspect]
     Active Substance: DENOSUMAB
     Dosage: UNK
     Route: 065
     Dates: end: 20170907

REACTIONS (9)
  - Tooth disorder [Unknown]
  - Bone disorder [Unknown]
  - Wound infection staphylococcal [Unknown]
  - Off label use [Unknown]
  - Spinal cord compression [Unknown]
  - Femur fracture [Unknown]
  - Lower limb fracture [Unknown]
  - Device breakage [Unknown]
  - Pain in extremity [Unknown]

NARRATIVE: CASE EVENT DATE: 20161222
